FAERS Safety Report 23260244 (Version 1)
Quarter: 2023Q4

REPORT INFORMATION
  Report Type: Report from Study
  Country: NL (occurrence: NL)
  Receive Date: 20231204
  Receipt Date: 20231204
  Transmission Date: 20240110
  Serious: Yes (Hospitalization)
  Sender: FDA-Public Use
  Company Number: NL-ABBVIE-5475927

PATIENT
  Age: 75 Year
  Sex: Male

DRUGS (12)
  1. CARBIDOPA\LEVODOPA [Suspect]
     Active Substance: CARBIDOPA\LEVODOPA
     Indication: Parkinson^s disease
     Dosage: MD: 7.0 ML, CD: 7.4 ML/H, ED: 4.5 ML
     Route: 050
     Dates: start: 20230912, end: 20231025
  2. CARBIDOPA\LEVODOPA [Suspect]
     Active Substance: CARBIDOPA\LEVODOPA
     Dosage: MD: 6.5 ML, CD: 7.3 ML/H, ED: 5.0 ML, CND: 5.7, END: 3.5 ML
     Route: 050
     Dates: start: 20231025, end: 20231028
  3. CARBIDOPA\LEVODOPA [Suspect]
     Active Substance: CARBIDOPA\LEVODOPA
     Route: 050
     Dates: start: 20171201
  4. CARBIDOPA\LEVODOPA [Suspect]
     Active Substance: CARBIDOPA\LEVODOPA
     Dosage: MD: 5.0 ML, CD: 7.1 ML/H, ED: 5.0 ML, CND:6.1 ML/H
     Route: 050
     Dates: start: 20231127, end: 20231127
  5. CARBIDOPA\LEVODOPA [Suspect]
     Active Substance: CARBIDOPA\LEVODOPA
     Dosage: CND:5.9 ML/H
     Route: 050
     Dates: start: 20231121, end: 20231127
  6. CARBIDOPA\LEVODOPA [Suspect]
     Active Substance: CARBIDOPA\LEVODOPA
     Dosage: MD: 5.0 ML, CD: 6.9 ML/H, ED: 5.0 ML
     Route: 050
     Dates: start: 20231102, end: 20231121
  7. CARBIDOPA\LEVODOPA [Suspect]
     Active Substance: CARBIDOPA\LEVODOPA
     Dosage: MD: 6.0 ML, CD: 7.3 ML/H, ED: 5.0 ML, LAST ADMIN DATE NOV 2023
     Route: 050
     Dates: start: 20231127
  8. CARBIDOPA\LEVODOPA [Suspect]
     Active Substance: CARBIDOPA\LEVODOPA
     Dosage: MD: 5.0 ML, CD: 7.1 ML/H, ED: 5.0 ML, FIRST ADMIN DATE: NOV 2023
     Route: 050
  9. SYMMETREL [Concomitant]
     Active Substance: AMANTADINE HYDROCHLORIDE
     Indication: Parkinson^s disease
  10. POLYETHYLENE GLYCOLS [Concomitant]
     Active Substance: POLYETHYLENE GLYCOLS
     Indication: Bowel movement irregularity
     Dosage: 3 SACHETS A DAY
  11. BENSERAZIDE HYDROCHLORIDE\LEVODOPA [Concomitant]
     Active Substance: BENSERAZIDE HYDROCHLORIDE\LEVODOPA
     Indication: Parkinson^s disease
  12. MOVICOLON [Concomitant]
     Active Substance: POLYETHYLENE GLYCOL 3350\POTASSIUM CHLORIDE\SODIUM BICARBONATE\SODIUM CHLORIDE
     Indication: Product used for unknown indication

REACTIONS (13)
  - Norovirus infection [Not Recovered/Not Resolved]
  - Device issue [Recovered/Resolved]
  - Irritability [Not Recovered/Not Resolved]
  - Dyskinesia [Recovering/Resolving]
  - Parkinson^s disease [Not Recovered/Not Resolved]
  - Underdose [Not Recovered/Not Resolved]
  - On and off phenomenon [Not Recovered/Not Resolved]
  - Gait inability [Not Recovered/Not Resolved]
  - Reduced facial expression [Not Recovered/Not Resolved]
  - Device alarm issue [Recovered/Resolved]
  - Drug level decreased [Not Recovered/Not Resolved]
  - Muscle spasms [Not Recovered/Not Resolved]
  - Device issue [Not Recovered/Not Resolved]

NARRATIVE: CASE EVENT DATE: 20230101
